FAERS Safety Report 17265203 (Version 1)
Quarter: 2020Q1

REPORT INFORMATION
  Report Type: Report from Study
  Country: None (occurrence: NL)
  Receive Date: 20200114
  Receipt Date: 20200114
  Transmission Date: 20200409
  Serious: Yes (Hospitalization)
  Sender: FDA-Public Use
  Company Number: NL-ABBVIE-20K-114-3221225-00

PATIENT
  Sex: Male

DRUGS (5)
  1. SYNAGIS [Suspect]
     Active Substance: PALIVIZUMAB
     Route: 030
     Dates: start: 20191209, end: 20191209
  2. SYNAGIS [Suspect]
     Active Substance: PALIVIZUMAB
     Indication: RESPIRATORY FAILURE
     Route: 030
     Dates: start: 20191111, end: 20191111
  3. SYNAGIS [Suspect]
     Active Substance: PALIVIZUMAB
     Indication: DIAPHRAGMATIC HERNIA
     Route: 030
     Dates: start: 20191014, end: 20191014
  4. SYNAGIS [Suspect]
     Active Substance: PALIVIZUMAB
     Route: 030
  5. SYNAGIS [Suspect]
     Active Substance: PALIVIZUMAB
     Route: 030
     Dates: start: 20200107, end: 20200107

REACTIONS (2)
  - Body temperature decreased [Not Recovered/Not Resolved]
  - Crying [Not Recovered/Not Resolved]
